FAERS Safety Report 18320570 (Version 1)
Quarter: 2020Q3

REPORT INFORMATION
  Report Type: Spontaneous
  Country: NL (occurrence: NL)
  Receive Date: 20200928
  Receipt Date: 20200928
  Transmission Date: 20201103
  Serious: Yes (Other)
  Sender: FDA-Public Use
  Company Number: NL-TEVA-2020-NL-1831443

PATIENT
  Age: 80 Year
  Sex: Female
  Weight: 70 kg

DRUGS (3)
  1. CARBASALAATCALCIUM POEDER 100MG / BRAND NAME NOT SPECIFIED [Concomitant]
     Dosage: SACHET, 100MG,  THERAPY START DATE : ASKU, THERAPY END DATE : ASKU
  2. LOSARTAN/HYDROCHLOORTHIAZIDE TAB OMHULD 50/12,5MG / BRAND NAME NOT SP [Suspect]
     Active Substance: HYDROCHLOROTHIAZIDE\LOSARTAN
     Indication: HYPERTENSION
     Dosage: 1 DOSAGE FORMS DAILY;  THERAPY END DATE : ASKU
     Dates: start: 20180901
  3. OMEPRAZOL / BRAND NAME NOT SPECIFIED [Concomitant]
     Dosage: 1 DOSAGE FORMS DAILY; THERAPY START DATE : ASKU, THERAPY END DATE : ASKU

REACTIONS (2)
  - Lip neoplasm malignant stage unspecified [Not Recovered/Not Resolved]
  - Skin cancer [Not Recovered/Not Resolved]

NARRATIVE: CASE EVENT DATE: 20190428
